FAERS Safety Report 12338194 (Version 2)
Quarter: 2016Q2

REPORT INFORMATION
  Report Type: Report from Study
  Country: IR (occurrence: IR)
  Receive Date: 20160505
  Receipt Date: 20160610
  Transmission Date: 20160815
  Serious: Yes (Other)
  Sender: FDA-Public Use
  Company Number: IR-BAYER-2016-078904

PATIENT
  Age: 38 Year
  Sex: Female

DRUGS (1)
  1. BETAFERON [Suspect]
     Active Substance: INTERFERON BETA-1B
     Indication: MULTIPLE SCLEROSIS
     Dosage: 62.5 ?G, QOD
     Route: 058
     Dates: start: 201604

REACTIONS (3)
  - Malaise [None]
  - Depressed level of consciousness [None]
  - Dizziness [None]

NARRATIVE: CASE EVENT DATE: 20160415
